FAERS Safety Report 16192222 (Version 1)
Quarter: 2019Q2

REPORT INFORMATION
  Report Type: Spontaneous
  Country: PL (occurrence: PL)
  Receive Date: 20190412
  Receipt Date: 20190412
  Transmission Date: 20190711
  Serious: Yes (Hospitalization, Other)
  Sender: FDA-Public Use
  Company Number: PL-ACTELION-A-US2019-189207

PATIENT
  Sex: Male
  Weight: 2.11 kg

DRUGS (1)
  1. VENTAVIS [Suspect]
     Active Substance: ILOPROST
     Indication: MATERNAL EXPOSURE DURING PREGNANCY
     Route: 064

REACTIONS (4)
  - Premature delivery [Unknown]
  - Low birth weight baby [Recovering/Resolving]
  - Endotracheal intubation [Recovered/Resolved]
  - Foetal exposure during pregnancy [Unknown]
